FAERS Safety Report 8421643-4 (Version None)
Quarter: 2012Q2

REPORT INFORMATION
  Report Type: 
  Country: None (occurrence: None)
  Receive Date: 20120608
  Receipt Date: 20120601
  Transmission Date: 20120825
  Serious: Yes (Other)
  Sender: FDA-Public Use
  Company Number: US-GENZYME-HECT-1000191

PATIENT
  Sex: Female

DRUGS (59)
  1. EPOGEN [Concomitant]
     Dosage: 10000 U, 2X/W
     Route: 058
     Dates: start: 20120209
  2. EPOGEN [Concomitant]
     Dosage: 4500 U, 1X/W
     Route: 058
     Dates: start: 20101214
  3. CALCITRIOL [Concomitant]
     Indication: PRODUCT USED FOR UNKNOWN INDICATION
     Dosage: 1 MCG, UNK
     Route: 048
     Dates: start: 20110723, end: 20110802
  4. VENOFER [Concomitant]
     Dosage: 100 MG, 1X/W
     Route: 042
     Dates: start: 20100708
  5. CLONIDINE [Concomitant]
     Indication: PRODUCT USED FOR UNKNOWN INDICATION
     Dosage: 0.2 MG, QD, EVERY NITE
     Route: 048
     Dates: start: 20100624, end: 20120320
  6. CLONIDINE [Concomitant]
     Dosage: 0.3 MG, TID
     Route: 048
     Dates: start: 20120517
  7. METOPROLOL [Concomitant]
     Indication: PRODUCT USED FOR UNKNOWN INDICATION
     Dosage: 50 MG, BID
     Route: 048
     Dates: start: 20110721, end: 20120320
  8. EPOGEN [Concomitant]
     Dosage: 4000 U, 1X/W
     Route: 058
     Dates: start: 20110609
  9. FOLBEE PLUS [Concomitant]
     Dosage: UNK
     Route: 065
     Dates: start: 20120417
  10. TOPZOL [Concomitant]
     Indication: PRODUCT USED FOR UNKNOWN INDICATION
     Dosage: 50 MG, BID
     Route: 048
     Dates: start: 20120330
  11. EPOGEN [Concomitant]
     Dosage: 6000 U, 1X/W
     Route: 058
     Dates: start: 20110311
  12. EPOGEN [Concomitant]
     Dosage: 3000 U, 1X/W
     Route: 058
     Dates: start: 20110419
  13. EPOGEN [Concomitant]
     Dosage: 3000 U, UNK
     Route: 058
     Dates: start: 20101112
  14. IRON [Concomitant]
     Indication: PRODUCT USED FOR UNKNOWN INDICATION
     Dosage: 100 MG, 1X/W
     Route: 042
     Dates: start: 20120209
  15. VENOFER [Concomitant]
     Dosage: 100 MG, ONCE IN MONTH
     Route: 042
     Dates: start: 20100208
  16. FOLBEE PLUS [Concomitant]
     Indication: PRODUCT USED FOR UNKNOWN INDICATION
     Dosage: QD
     Route: 065
     Dates: start: 20091027, end: 20120417
  17. FOLBEE PLUS [Concomitant]
     Dosage: UNK
     Route: 065
     Dates: start: 20120531
  18. CLONIDINE [Concomitant]
     Dosage: 0.2 MG, BID
     Route: 048
     Dates: start: 20120330
  19. VITAMIN D [Concomitant]
     Indication: PRODUCT USED FOR UNKNOWN INDICATION
     Dosage: 1200 U, QD
     Route: 048
     Dates: start: 20110125
  20. SENSIPAR [Concomitant]
     Dosage: 30 MG, QD
     Route: 065
     Dates: start: 20120510
  21. ACIPHEX [Concomitant]
     Indication: PRODUCT USED FOR UNKNOWN INDICATION
     Dosage: 20 MG, QD
     Route: 048
     Dates: start: 20120121
  22. HECTOROL [Suspect]
     Indication: HYPERPARATHYROIDISM SECONDARY
     Dosage: 2 MCG, 3X/W
     Route: 042
     Dates: start: 20120223
  23. RENVELA [Suspect]
     Dosage: 2 TABLET, TID, WITH MEALS
     Route: 048
     Dates: start: 20110908, end: 20120204
  24. EPOGEN [Concomitant]
     Dosage: 4500 U, 1X/W
     Route: 058
     Dates: start: 20101214
  25. EPOGEN [Concomitant]
     Dosage: 3000 U, UNK
     Route: 058
     Dates: start: 20110408
  26. EPOGEN [Concomitant]
     Dosage: 3000 U, UNK
     Route: 042
     Dates: start: 20100612
  27. VENOFER [Concomitant]
     Dosage: 100 MG, 2 X MONTH
     Route: 042
     Dates: start: 20100511
  28. VENOFER [Concomitant]
     Dosage: 100 MG, QD
     Route: 065
  29. LABETALOL HYDROCHLORIDE [Concomitant]
     Indication: PRODUCT USED FOR UNKNOWN INDICATION
     Dosage: 200 MG, TID
     Route: 048
     Dates: start: 20120320, end: 20120330
  30. LISINOPRIL [Concomitant]
     Indication: PRODUCT USED FOR UNKNOWN INDICATION
     Dosage: 40 MG, QD
     Route: 065
     Dates: start: 20120508
  31. EPOGEN [Concomitant]
     Indication: PRODUCT USED FOR UNKNOWN INDICATION
     Dosage: 4000 U, UNK
     Route: 042
     Dates: start: 20091216
  32. EPOGEN [Concomitant]
     Dosage: 7500 U, UNK
     Route: 058
     Dates: start: 20110707
  33. EPOGEN [Concomitant]
     Dosage: 10000 U, 1X/W
     Route: 058
     Dates: start: 20120105
  34. EPOGEN [Concomitant]
     Dosage: 10000 U, UNK
     Route: 058
     Dates: start: 20120310
  35. EPOGEN [Concomitant]
     Dosage: 4000 U, UNK
     Route: 042
     Dates: start: 20100724
  36. EPOGEN [Concomitant]
     Dosage: 3000 U, UNK
     Route: 042
     Dates: start: 20101012
  37. CALCITRIOL [Concomitant]
     Dosage: 1 MG, 1X/W
     Route: 048
     Dates: start: 20120222
  38. DOXAZOSIN MESYLATE [Concomitant]
     Indication: PRODUCT USED FOR UNKNOWN INDICATION
     Dosage: 2 MG, BID
     Route: 048
     Dates: start: 20111112, end: 20120320
  39. METHYLDOPA [Concomitant]
     Indication: PRODUCT USED FOR UNKNOWN INDICATION
     Dosage: 500 MG, TID
     Route: 048
     Dates: start: 20120320, end: 20120330
  40. RENVELA [Suspect]
     Indication: HYPERPHOSPHATAEMIA
     Dosage: 800 MG, TID
     Route: 048
     Dates: start: 20080621, end: 20110908
  41. EPOGEN [Concomitant]
     Dosage: 2500 U, UNK
     Route: 042
     Dates: start: 20100511
  42. IRON [Concomitant]
     Dosage: 100 MG, UNK
     Route: 042
     Dates: start: 20120310
  43. IRON [Concomitant]
     Dosage: 100 MG, 1X/W
     Route: 042
     Dates: start: 20120405
  44. VENOFER [Concomitant]
     Indication: PRODUCT USED FOR UNKNOWN INDICATION
     Dosage: 100 MG X 5, UNK
     Route: 065
     Dates: start: 20091211
  45. ACIPHEX [Concomitant]
     Dosage: 20 MG, BID
     Route: 048
     Dates: start: 20120517
  46. NIFEDIPINE [Concomitant]
     Indication: PRODUCT USED FOR UNKNOWN INDICATION
     Dosage: 60 MG, QD
     Route: 048
     Dates: start: 20120512
  47. EPOGEN [Concomitant]
     Dosage: 4500 U, 1X/W
     Route: 058
     Dates: start: 20110505
  48. EPOGEN [Concomitant]
     Dosage: 3000 U, UNK
     Route: 042
     Dates: start: 20100208
  49. EPOGEN [Concomitant]
     Dosage: 2000 U, UNK
     Route: 042
     Dates: start: 20100309
  50. EPOGEN [Concomitant]
     Dosage: 4000 U, 1X/W
     Route: 058
     Dates: start: 20101114, end: 20101117
  51. VENOFER [Concomitant]
     Dosage: 100 MG, ONCE IN MONTH
     Route: 043
     Dates: start: 20100805
  52. FOLIC ACID [Concomitant]
     Indication: PRODUCT USED FOR UNKNOWN INDICATION
     Dosage: 4 MG, QD
     Route: 048
     Dates: start: 20090205
  53. SENSIPAR [Concomitant]
     Indication: PRODUCT USED FOR UNKNOWN INDICATION
     Dosage: 30 MG, QD
     Route: 065
     Dates: start: 20120117, end: 20120322
  54. EPOGEN [Concomitant]
     Dosage: 1X/W
     Route: 058
     Dates: start: 20111110
  55. EPOGEN [Concomitant]
     Dosage: UNK
     Route: 065
     Dates: start: 20100107
  56. IRON [Concomitant]
     Dosage: 100 MG, 2X/W
     Route: 042
     Dates: start: 20120509
  57. CALCITRIOL [Concomitant]
     Dosage: 1 MCG, BID
     Route: 048
     Dates: start: 20120320
  58. ACETAMINOPHEN [Concomitant]
     Indication: PRODUCT USED FOR UNKNOWN INDICATION
     Dosage: 500 MG, PRN
  59. CLONIDINE [Concomitant]
     Dosage: 0.2 MG, TID
     Route: 048
     Dates: start: 20120414

REACTIONS (2)
  - FOETAL DEATH [None]
  - MATERNAL EXPOSURE DURING PREGNANCY [None]
